FAERS Safety Report 8673055 (Version 5)
Quarter: 2013Q3

REPORT INFORMATION
  Report Type: Spontaneous
  Country: JP (occurrence: JP)
  Receive Date: 20120719
  Receipt Date: 20130711
  Transmission Date: 20140515
  Serious: Yes (Life-Threatening)
  Sender: FDA-Public Use
  Company Number: JP-ROCHE-1087158

PATIENT
  Age: 71 Year
  Sex: Female
  Weight: 36 kg

DRUGS (5)
  1. AVASTIN [Suspect]
     Indication: LUNG ADENOCARCINOMA RECURRENT
     Dosage: ONLY ONCE
     Route: 041
     Dates: start: 20120329, end: 20120329
  2. CARBOPLATIN [Concomitant]
     Indication: LUNG ADENOCARCINOMA RECURRENT
     Dosage: AUC4
     Route: 041
     Dates: start: 20120126, end: 20120329
  3. ALIMTA [Concomitant]
     Indication: LUNG ADENOCARCINOMA RECURRENT
     Route: 041
     Dates: start: 20120126, end: 20120329
  4. MORPHINE SULFATE [Concomitant]
     Route: 048
     Dates: start: 20120519, end: 20120609
  5. NOVAMIN [Concomitant]
     Route: 048
     Dates: start: 20120519, end: 20120609

REACTIONS (4)
  - Obstructive airways disorder [Recovered/Resolved with Sequelae]
  - Cardio-respiratory arrest [Unknown]
  - Pneumonia [Not Recovered/Not Resolved]
  - Haemoptysis [Unknown]
